FAERS Safety Report 8008815-8 (Version None)
Quarter: 2011Q4

REPORT INFORMATION
  Report Type: 
  Country: None (occurrence: None)
  Receive Date: 20111227
  Receipt Date: 20111216
  Transmission Date: 20120403
  Serious: Yes (Other)
  Sender: FDA-Public Use
  Company Number: PHHY2011JP110771

PATIENT
  Age: 82 Year
  Sex: Male

DRUGS (1)
  1. PARLODEL [Suspect]
     Indication: ACROMEGALY
     Route: 048

REACTIONS (1)
  - CARDIAC VALVE DISEASE [None]
